FAERS Safety Report 10335511 (Version 1)
Quarter: 2014Q3

REPORT INFORMATION
  Report Type: Spontaneous
  Country: US (occurrence: US)
  Receive Date: 20140723
  Receipt Date: 20140723
  Transmission Date: 20150326
  Serious: No
  Sender: FDA-Public Use
  Company Number: US-UNITED THERAPEUTICS-UTC-046658

PATIENT
  Sex: Female
  Weight: 72.57 kg

DRUGS (3)
  1. LETAIRIS [Suspect]
     Active Substance: AMBRISENTAN
  2. ADCIRCA [Suspect]
     Active Substance: TADALAFIL
  3. TYVASO [Suspect]
     Active Substance: TREPROSTINIL
     Dosage: 54 MICROGRAM
     Dates: start: 20111007

REACTIONS (1)
  - Adverse event [Unknown]
